FAERS Safety Report 19089808 (Version 1)
Quarter: 2021Q2

REPORT INFORMATION
  Report Type: Report from Study
  Country: CA (occurrence: CA)
  Receive Date: 20210403
  Receipt Date: 20210403
  Transmission Date: 20210717
  Serious: Yes (Other)
  Sender: FDA-Public Use
  Company Number: CA-TEVA-2021-CA-1894907

PATIENT
  Age: 39 Year
  Sex: Female

DRUGS (3)
  1. TAMOXIFEN [Concomitant]
     Active Substance: TAMOXIFEN
  2. VITAMIN D [Concomitant]
     Active Substance: VITAMIN D NOS
  3. COPAXONE [Suspect]
     Active Substance: GLATIRAMER ACETATE
     Indication: MULTIPLE SCLEROSIS
     Dates: start: 20210302

REACTIONS (6)
  - Injection site urticaria [Unknown]
  - Nervousness [Unknown]
  - Pallor [Recovering/Resolving]
  - Presyncope [Recovering/Resolving]
  - Hyperhidrosis [Recovering/Resolving]
  - Injection site pain [Unknown]

NARRATIVE: CASE EVENT DATE: 202103
